FAERS Safety Report 4905069-3 (Version None)
Quarter: 2006Q1

REPORT INFORMATION
  Report Type: 
  Country: None (occurrence: None)
  Receive Date: 20060208
  Receipt Date: 20051110
  Transmission Date: 20060701
  Serious: No
  Sender: FDA-Public Use
  Company Number: US-GLAXOSMITHKLINE-A0581824A

PATIENT
  Sex: Male

DRUGS (3)
  1. PAROXETINE HCL [Suspect]
     Dosage: 30MG PER DAY
     Route: 048
     Dates: end: 20050801
  2. PAXIL CR [Suspect]
     Dosage: 25MG PER DAY
     Route: 048
  3. NO CONCURRENT MEDICATION [Concomitant]

REACTIONS (2)
  - ANXIETY [None]
  - THERAPEUTIC RESPONSE DECREASED [None]
